FAERS Safety Report 8099681-3 (Version None)
Quarter: 2012Q1

REPORT INFORMATION
  Report Type: 
  Country: None (occurrence: None)
  Receive Date: 20120129
  Receipt Date: 20111008
  Transmission Date: 20120608
  Serious: No
  Sender: FDA-Public Use
  Company Number: US-ABBOTT-11P-163-0862334-00

PATIENT
  Age: 58 Year
  Sex: Female

DRUGS (9)
  1. OMEPRAZOLE [Concomitant]
     Indication: GASTROOESOPHAGEAL REFLUX DISEASE
  2. HUMIRA [Suspect]
     Indication: RHEUMATOID ARTHRITIS
     Dates: start: 20110919
  3. LEFLUNOMIDE [Concomitant]
     Indication: RHEUMATOID ARTHRITIS
  4. HYDROCODONE BITARTRATE [Concomitant]
     Indication: PAIN
     Dosage: PRN
  5. PREDNISONE TAB [Concomitant]
     Indication: RHEUMATOID ARTHRITIS
  6. TRIAMTERENE AND HYDROCHLOROTHIAZIDE [Concomitant]
     Indication: BLOOD PRESSURE
     Dosage: 35.5/.5 DAILY
  7. PLAQUENIL [Concomitant]
     Indication: RHEUMATOID ARTHRITIS
  8. FERROUS SULFATE TAB [Concomitant]
     Indication: ANAEMIA
     Dosage: WALGREENS BRAND TAKES WHEN PALMS ARE WHITE
  9. NORVASC [Concomitant]
     Indication: BLOOD PRESSURE

REACTIONS (1)
  - INJECTION SITE HAEMORRHAGE [None]
